FAERS Safety Report 23857815 (Version 1)
Quarter: 2024Q2

REPORT INFORMATION
  Report Type: Spontaneous
  Country: AU (occurrence: AU)
  Receive Date: 20240515
  Receipt Date: 20240515
  Transmission Date: 20240717
  Serious: No
  Sender: FDA-Public Use
  Company Number: AU-009507513-2405AUS003834

PATIENT
  Age: 60 Year
  Sex: Male

DRUGS (1)
  1. LAGEVRIO [Suspect]
     Active Substance: MOLNUPIRAVIR
     Indication: Prophylaxis
     Dosage: UNK
     Route: 048

REACTIONS (1)
  - Product prescribing issue [Unknown]
